FAERS Safety Report 5212941-6 (Version None)
Quarter: 2007Q1

REPORT INFORMATION
  Report Type: 
  Country: None (occurrence: None)
  Receive Date: 20070117
  Receipt Date: 20070117
  Transmission Date: 20070707
  Serious: Yes (Hospitalization)
  Sender: FDA-Public Use
  Company Number: None

PATIENT
  Age: 77 Year
  Sex: Male
  Weight: 74.8435 kg

DRUGS (7)
  1. BENAZEPRIL HYDROCHLORIDE [Suspect]
     Indication: HYPERTENSION
     Dosage: 20 MG DAILY PO
     Route: 048
     Dates: start: 20031101, end: 20061220
  2. ATENOLOL [Concomitant]
  3. CLOPIRDOGREL [Concomitant]
  4. HYDROCHLOROTHIAZIDE [Concomitant]
  5. LORATADINE [Concomitant]
  6. MOMETASONE FUROATE [Concomitant]
  7. ROSUVASTATIN [Concomitant]

REACTIONS (6)
  - DRUG INEFFECTIVE [None]
  - DYSPNOEA [None]
  - HEADACHE [None]
  - PRODUCTIVE COUGH [None]
  - SPUTUM DISCOLOURED [None]
  - THROAT IRRITATION [None]
